FAERS Safety Report 24140241 (Version 3)
Quarter: 2024Q4

REPORT INFORMATION
  Report Type: Spontaneous
  Country: US (occurrence: US)
  Receive Date: 20240726
  Receipt Date: 20241016
  Transmission Date: 20250115
  Serious: No
  Sender: SANOFI AVENTIS
  Company Number: US-SA-SAC20240722001472

PATIENT
  Age: 72 Year
  Sex: Female

DRUGS (2)
  1. DUPIXENT [Suspect]
     Active Substance: DUPILUMAB
     Indication: Neurodermatitis
     Dosage: 600 MG, 1X
     Route: 058
     Dates: start: 20240703, end: 20240703
  2. DUPIXENT [Suspect]
     Active Substance: DUPILUMAB
     Dosage: 300 MG, QOW
     Route: 058
     Dates: start: 202407

REACTIONS (10)
  - Knee deformity [Unknown]
  - Skin ulcer [Recovering/Resolving]
  - Skin discolouration [Recovering/Resolving]
  - Dermatitis [Recovering/Resolving]
  - Skin warm [Recovering/Resolving]
  - Erythema [Recovering/Resolving]
  - Skin weeping [Recovering/Resolving]
  - Acne [Not Recovered/Not Resolved]
  - Eczema [Unknown]
  - Injection site pain [Unknown]

NARRATIVE: CASE EVENT DATE: 20240101
